FAERS Safety Report 17819605 (Version 1)
Quarter: 2020Q2

REPORT INFORMATION
  Report Type: Spontaneous
  Country: NO (occurrence: NO)
  Receive Date: 20200523
  Receipt Date: 20200523
  Transmission Date: 20200714
  Serious: Yes (Hospitalization)
  Sender: FDA-Public Use
  Company Number: NO-MYLANLABS-2020M1051688

PATIENT
  Sex: Male

DRUGS (2)
  1. LEPONEX [Suspect]
     Active Substance: CLOZAPINE
     Indication: PRODUCT USED FOR UNKNOWN INDICATION
     Dosage: 50 MG IN THE MORNING AND 150 MG IN THE EVENING.
  2. RISPERDAL CONSTA [Concomitant]
     Active Substance: RISPERIDONE
     Dosage: 37.5 MILLIGRAM

REACTIONS (1)
  - Product dose omission [Not Recovered/Not Resolved]
